FAERS Safety Report 6031643-X (Version None)
Quarter: 2009Q1

REPORT INFORMATION
  Report Type: 
  Country: None (occurrence: None)
  Receive Date: 20090108
  Receipt Date: 20071210
  Transmission Date: 20090719
  Serious: Yes (Other)
  Sender: FDA-Public Use
  Company Number: US-JNJFOC-20071203322

PATIENT
  Sex: Female

DRUGS (1)
  1. ERTACZO [Suspect]
     Indication: TINEA PEDIS
     Route: 061

REACTIONS (1)
  - DERMATITIS CONTACT [None]
